FAERS Safety Report 7255676-0 (Version None)
Quarter: 2011Q1

REPORT INFORMATION
  Report Type: 
  Country: None (occurrence: None)
  Receive Date: 20110129
  Receipt Date: 20100825
  Transmission Date: 20110831
  Serious: No
  Sender: FDA-Public Use
  Company Number: US-ABBOTT-10P-163-0666857-00

PATIENT
  Sex: Female
  Weight: 82.628 kg

DRUGS (6)
  1. HUMIRA [Suspect]
     Indication: RHEUMATOID ARTHRITIS
     Route: 058
  2. METHOTREXATE [Suspect]
     Indication: PRODUCT USED FOR UNKNOWN INDICATION
     Dosage: 7-2.5MG TABLETS PER WEEK
     Route: 048
  3. WELLBUTRIN [Concomitant]
     Indication: DEPRESSION
  4. FOLIC ACID [Concomitant]
     Indication: PRODUCT USED FOR UNKNOWN INDICATION
  5. FOSAMAX [Concomitant]
     Indication: BONE DISORDER
  6. PERCOCET [Concomitant]
     Indication: PRODUCT USED FOR UNKNOWN INDICATION
     Dosage: 10/325

REACTIONS (4)
  - PAIN IN EXTREMITY [None]
  - MUSCULAR WEAKNESS [None]
  - NAUSEA [None]
  - LYMPHADENOPATHY [None]
